FAERS Safety Report 22230796 (Version 1)
Quarter: 2023Q2

REPORT INFORMATION
  Report Type: Report from Study
  Country: US (occurrence: None)
  Receive Date: 20230420
  Receipt Date: 20230420
  Transmission Date: 20230722
  Serious: Yes (Death)
  Sender: FDA-Public Use
  Company Number: 2023A089184

PATIENT
  Age: 31053 Day
  Sex: Male
  Weight: 71.7 kg

DRUGS (13)
  1. CALQUENCE [Suspect]
     Active Substance: ACALABRUTINIB
     Indication: Mantle cell lymphoma
     Route: 048
     Dates: start: 20230131
  2. ACETAMINOPHEN [Concomitant]
     Active Substance: ACETAMINOPHEN
  3. AMLODIPINE [Concomitant]
     Active Substance: AMLODIPINE BESYLATE
  4. ATORVASTATIN [Concomitant]
     Active Substance: ATORVASTATIN
  5. CLOPIDOGREL [Concomitant]
     Active Substance: CLOPIDOGREL BISULFATE
  6. COLESTIPOL [Concomitant]
     Active Substance: COLESTIPOL
  7. FISH OIL [Concomitant]
     Active Substance: FISH OIL
  8. INDAPAMIDE [Concomitant]
     Active Substance: INDAPAMIDE
  9. METOPROLOL [Concomitant]
     Active Substance: METOPROLOL
  10. METAMUCIL [Concomitant]
     Active Substance: PLANTAGO SEED
  11. NITROSTAT [Concomitant]
     Active Substance: NITROGLYCERIN
  12. RASBURICASE [Concomitant]
     Active Substance: RASBURICASE
  13. TAMSULOSIN [Concomitant]
     Active Substance: TAMSULOSIN

REACTIONS (1)
  - Death [Fatal]

NARRATIVE: CASE EVENT DATE: 20230417
